FAERS Safety Report 12227668 (Version 1)
Quarter: 2016Q2

REPORT INFORMATION
  Report Type: Spontaneous
  Country: US (occurrence: US)
  Receive Date: 20160401
  Receipt Date: 20160401
  Transmission Date: 20160815
  Serious: Yes (Other)
  Sender: FDA-Public Use
  Company Number: US-ASTRAZENECA-2016SE32934

PATIENT
  Age: 835 Month
  Sex: Male
  Weight: 93.4 kg

DRUGS (1)
  1. BYETTA [Suspect]
     Active Substance: EXENATIDE
     Indication: TYPE 2 DIABETES MELLITUS
     Dosage: 250 MCG / 1.2 ML, TWO TIMES A DAY
     Route: 058
     Dates: start: 200403

REACTIONS (3)
  - Spinal pain [Recovered/Resolved with Sequelae]
  - Dyspnoea [Unknown]
  - Mouth breathing [Unknown]

NARRATIVE: CASE EVENT DATE: 201503
